FAERS Safety Report 8150844-8 (Version None)
Quarter: 2012Q1

REPORT INFORMATION
  Report Type: 
  Country: None (occurrence: None)
  Receive Date: 20120220
  Receipt Date: 20120207
  Transmission Date: 20120608
  Serious: Yes (Other)
  Sender: FDA-Public Use
  Company Number: US-ELI_LILLY_AND_COMPANY-US201111001523

PATIENT
  Sex: Female

DRUGS (3)
  1. CYMBALTA [Suspect]
     Dosage: UNK, UNKNOWN
  2. CYMBALTA [Suspect]
     Indication: DEPRESSION
     Dosage: UNK
     Dates: start: 20070101
  3. EVISTA [Suspect]
     Indication: MENOPAUSE
     Dosage: UNK

REACTIONS (6)
  - ENDOMETRIAL DISORDER [None]
  - PAPILLARY SEROUS ENDOMETRIAL CARCINOMA [None]
  - ANXIETY [None]
  - DEPRESSION [None]
  - OFF LABEL USE [None]
  - NON-HODGKIN'S LYMPHOMA [None]
